FAERS Safety Report 9574753 (Version 3)
Quarter: 2013Q4

REPORT INFORMATION
  Report Type: Report from Study
  Country: US (occurrence: US)
  Receive Date: 20131001
  Receipt Date: 20131015
  Transmission Date: 20140711
  Serious: Yes (Hospitalization)
  Sender: FDA-Public Use
  Company Number: US-US-EMD SERONO, INC.-7239743

PATIENT
  Age: 48 Year
  Sex: Female

DRUGS (1)
  1. REBIF [Suspect]
     Indication: MULTIPLE SCLEROSIS
     Route: 058
     Dates: start: 20130307

REACTIONS (11)
  - Blood pressure increased [Unknown]
  - Staphylococcal infection [Not Recovered/Not Resolved]
  - Panic attack [Unknown]
  - Chest pain [Unknown]
  - Tremor [Unknown]
  - Dizziness [Unknown]
  - Balance disorder [Unknown]
  - Neck pain [Not Recovered/Not Resolved]
  - Rash [Recovered/Resolved]
  - Headache [Not Recovered/Not Resolved]
  - Injection site cellulitis [Recovered/Resolved]
